FAERS Safety Report 6131443-6 (Version None)
Quarter: 2009Q1

REPORT INFORMATION
  Report Type: 
  Country: None (occurrence: None)
  Receive Date: 20090325
  Receipt Date: 20080711
  Transmission Date: 20090719
  Serious: No
  Sender: FDA-Public Use
  Company Number: US-BRISTOL-MYERS SQUIBB COMPANY-14258578

PATIENT
  Age: 66 Year
  Sex: Female

DRUGS (5)
  1. ERBITUX [Suspect]
     Indication: COLON CANCER
     Route: 042
     Dates: start: 20080207
  2. PROMETHAZINE [Concomitant]
  3. COUMADIN [Concomitant]
  4. NEXIUM [Concomitant]
  5. BENADRYL [Concomitant]
     Indication: PREMEDICATION

REACTIONS (1)
  - DERMATITIS ACNEIFORM [None]
